FAERS Safety Report 6057935-6 (Version None)
Quarter: 2009Q1

REPORT INFORMATION
  Report Type: 
  Country: None (occurrence: None)
  Receive Date: 20090129
  Receipt Date: 20090125
  Transmission Date: 20090719
  Serious: No
  Sender: FDA-Public Use
  Company Number: US-B.I. PHARMACEUTICALS,INC./RIDGEFIELD-2009-BP-00946BP

PATIENT
  Age: 50 Year
  Sex: Female

DRUGS (4)
  1. ZANTAC 150 [Suspect]
     Indication: ABDOMINAL DISCOMFORT
     Dosage: 1200MG
     Route: 048
     Dates: start: 20090124
  2. IMITREX [Concomitant]
     Indication: MIGRAINE
  3. PREMPRO [Concomitant]
     Indication: HORMONE THERAPY
  4. PRILOSEC [Concomitant]
     Indication: GASTRIC DISORDER

REACTIONS (2)
  - ACCIDENTAL OVERDOSE [None]
  - DIZZINESS [None]
